FAERS Safety Report 4468336-6 (Version None)
Quarter: 2004Q4

REPORT INFORMATION
  Report Type: 
  Country: None (occurrence: None)
  Receive Date: 20041007
  Receipt Date: 20040930
  Transmission Date: 20050328
  Serious: Yes (Life-Threatening, Hospitalization)
  Sender: FDA-Public Use
  Company Number: US-MERCK-0410USA00029

PATIENT
  Age: 62 Year
  Sex: Female

DRUGS (3)
  1. ESTROGENS (UNSPECIFIED) [Concomitant]
     Route: 065
  2. PREVACID [Concomitant]
     Route: 065
  3. VIOXX [Suspect]
     Indication: OSTEOARTHRITIS
     Route: 048
     Dates: start: 20020101, end: 20040101

REACTIONS (1)
  - MYOCARDIAL INFARCTION [None]
